FAERS Safety Report 9838401 (Version 1)
Quarter: 2014Q1

REPORT INFORMATION
  Report Type: Spontaneous
  Country: SG (occurrence: SG)
  Receive Date: 20140123
  Receipt Date: 20140123
  Transmission Date: 20141002
  Serious: Yes (Hospitalization)
  Sender: FDA-Public Use
  Company Number: SG-TEVA-456658ISR

PATIENT
  Sex: Male

DRUGS (12)
  1. METHOTREXATE [Suspect]
     Indication: PSORIASIS
     Dosage: ONCE A WEEK
     Route: 065
     Dates: start: 201108
  2. LITHIUM [Suspect]
     Indication: BIPOLAR DISORDER
     Route: 065
  3. FOLIC ACID [Concomitant]
     Route: 065
     Dates: start: 201108
  4. VALPROATE [Concomitant]
     Indication: BIPOLAR DISORDER
     Route: 065
  5. BETAMETHASONE [Concomitant]
     Indication: PSORIASIS
     Route: 061
  6. BETAMETHASONE [Concomitant]
     Route: 061
  7. COAL TAR [Concomitant]
     Indication: PSORIASIS
     Route: 061
  8. COAL TAR [Concomitant]
     Route: 061
  9. HYDROCORTISONE [Concomitant]
     Indication: PSORIASIS
     Route: 061
  10. CLIOQUINOL [Concomitant]
     Indication: PSORIASIS
     Route: 061
  11. QUETIAPINE [Concomitant]
     Indication: BIPOLAR DISORDER
     Dosage: 400 MILLIGRAM DAILY;
     Route: 065
  12. CARBAMAZEPINE [Concomitant]
     Indication: BIPOLAR DISORDER
     Dosage: 800 MILLIGRAM DAILY;
     Route: 065

REACTIONS (2)
  - Mania [Recovered/Resolved]
  - Psoriasis [Recovering/Resolving]
